FAERS Safety Report 23791149 (Version 1)
Quarter: 2024Q2

REPORT INFORMATION
  Report Type: Other
  Country: IN (occurrence: IN)
  Receive Date: 20240428
  Receipt Date: 20240428
  Transmission Date: 20240716
  Serious: Yes (Death, Other)
  Sender: FDA-Public Use
  Company Number: IN-LUPIN PHARMACEUTICALS INC.-2024-03351

PATIENT

DRUGS (5)
  1. BUDESONIDE\FORMOTEROL FUMARATE [Suspect]
     Active Substance: BUDESONIDE\FORMOTEROL FUMARATE
     Indication: Product used for unknown indication
     Dosage: UNK
     Route: 065
     Dates: start: 20221015
  2. TIOTROPIUM BROMIDE [Suspect]
     Active Substance: TIOTROPIUM BROMIDE
     Indication: Product used for unknown indication
     Dosage: UNK
     Route: 065
     Dates: start: 20221015
  3. AKURIT-4 [Suspect]
     Active Substance: ETHAMBUTOL HYDROCHLORIDE\ISONIAZID\PYRAZINAMIDE\RIFAMYCIN
     Indication: Product used for unknown indication
     Dosage: UNK (15 MIN BEFORE FOOD)
     Route: 065
     Dates: start: 20221015
  4. METFORMIN HYDROCHLORIDE [Suspect]
     Active Substance: METFORMIN HYDROCHLORIDE
     Indication: Product used for unknown indication
     Dosage: UNK (AFTER FOOD)
     Route: 065
     Dates: start: 20221015
  5. MONALAZONE DISODIUM [Suspect]
     Active Substance: MONALAZONE DISODIUM
     Indication: Product used for unknown indication
     Dosage: UNK (20 MIN BEFORE FOOD)
     Route: 065
     Dates: start: 20221015

REACTIONS (1)
  - Death [Fatal]

NARRATIVE: CASE EVENT DATE: 20231231
